FAERS Safety Report 15165077 (Version 1)
Quarter: 2018Q3

REPORT INFORMATION
  Report Type: Spontaneous
  Country: BE (occurrence: BE)
  Receive Date: 20180719
  Receipt Date: 20180719
  Transmission Date: 20181010
  Serious: Yes (Other)
  Sender: FDA-Public Use
  Company Number: BE-ASTELLAS-2018US031678

PATIENT
  Sex: Male

DRUGS (3)
  1. METHYLPREDNISOLONE. [Concomitant]
     Active Substance: METHYLPREDNISOLONE
     Indication: RENAL TRANSPLANT
     Route: 065
  2. TACROLIMUS. [Suspect]
     Active Substance: TACROLIMUS
     Indication: RENAL TRANSPLANT
     Route: 065
  3. MYCOPHENOLATE MOFETIL. [Concomitant]
     Active Substance: MYCOPHENOLATE MOFETIL
     Indication: RENAL TRANSPLANT
     Route: 065

REACTIONS (9)
  - Autonomic neuropathy [Recovered/Resolved]
  - Hypopituitarism [Recovering/Resolving]
  - Orthostatic hypotension [Unknown]
  - Renal failure [Unknown]
  - Amyloidosis [Recovered/Resolved]
  - C-reactive protein increased [Unknown]
  - Hyperprolactinaemia [Unknown]
  - Anaemia [Unknown]
  - Hyponatraemia [Unknown]
